FAERS Safety Report 22369057 (Version 1)
Quarter: 2023Q2

REPORT INFORMATION
  Report Type: Spontaneous
  Country: CN (occurrence: CN)
  Receive Date: 20230525
  Receipt Date: 20230525
  Transmission Date: 20230721
  Serious: Yes (Other)
  Sender: FDA-Public Use
  Company Number: CN-FOSUNKITE-FOSUNKITE-20230492

PATIENT
  Age: 55 Year
  Sex: Male

DRUGS (7)
  1. YESCARTA [Suspect]
     Active Substance: AXICABTAGENE CILOLEUCEL
     Indication: Diffuse large B-cell lymphoma
     Dosage: UNK
     Route: 042
     Dates: start: 20221216, end: 20221216
  2. CARMUSTINE [Concomitant]
     Active Substance: CARMUSTINE
     Indication: Lymphodepletion
     Dosage: 500 MG, D-7
     Dates: start: 20221209
  3. THIOTEPA [Concomitant]
     Active Substance: THIOTEPA
     Indication: Lymphodepletion
     Dosage: 80 MG, D-6
     Dates: start: 20221209
  4. ETOPOSIDE [Concomitant]
     Active Substance: ETOPOSIDE
     Indication: Lymphodepletion
     Dosage: 100 MG, QD, D-5-3
     Dates: start: 20221209
  5. MELPHALAN [Concomitant]
     Active Substance: MELPHALAN
     Indication: Lymphodepletion
     Dosage: 100 MG, D-2
     Dates: start: 20221209
  6. CYTARABINE [Concomitant]
     Active Substance: CYTARABINE
     Indication: Lymphodepletion
     Dosage: 100 MG, D-5-3
     Dates: start: 20221209
  7. AUTOLOGOUS STEM CELLS NOS [Concomitant]
     Dosage: 280 ML
     Dates: start: 20230102

REACTIONS (2)
  - Myelosuppression [Recovered/Resolved]
  - Pyrexia [Recovered/Resolved]

NARRATIVE: CASE EVENT DATE: 20221224
